FAERS Safety Report 6027280-3 (Version None)
Quarter: 2009Q1

REPORT INFORMATION
  Report Type: 
  Country: None (occurrence: None)
  Receive Date: 20090105
  Receipt Date: 20081231
  Transmission Date: 20090719
  Serious: Yes (Hospitalization)
  Sender: FDA-Public Use
  Company Number: US-BRISTOL-MYERS SQUIBB COMPANY-14458582

PATIENT
  Age: 45 Year
  Sex: Male
  Weight: 61 kg

DRUGS (3)
  1. ERBITUX [Suspect]
     Indication: HEAD AND NECK CANCER
     Dosage: 250 MG/M2 IV IN WEEKS 1-7. START DATE: 10SEP08.
     Route: 042
     Dates: start: 20081028, end: 20081028
  2. CISPLATIN [Suspect]
     Indication: HEAD AND NECK CANCER
     Dosage: 100 MG/M2 IV ON DAY 1 +22. DOSE STARTED ON 10SEP08.
     Route: 042
     Dates: start: 20081008, end: 20081008
  3. RADIATION THERAPY [Suspect]
     Indication: HEAD AND NECK CANCER
     Dosage: 1 DOSAGE FORM= 70 GY.NUMBER OF FRACTION:35
     Dates: start: 20081027, end: 20081027

REACTIONS (2)
  - POST PROCEDURAL HAEMORRHAGE [None]
  - PULMONARY HAEMORRHAGE [None]
